FAERS Safety Report 10520446 (Version 2)
Quarter: 2014Q4

REPORT INFORMATION
  Report Type: Report from Study
  Country: US (occurrence: US)
  Receive Date: 20141015
  Receipt Date: 20141015
  Transmission Date: 20150528
  Serious: Yes (Hospitalization)
  Sender: FDA-Public Use
  Company Number: US-GLAXOSMITHKLINE-A1071476B

PATIENT
  Age: 65 Year
  Sex: Female
  Weight: 61.1 kg

DRUGS (2)
  1. GSK2141795 [Suspect]
     Active Substance: UPROSERTIB
     Indication: BREAST CANCER METASTATIC
     Route: 048
     Dates: start: 20140321
  2. TRAMETINIB [Suspect]
     Active Substance: TRAMETINIB
     Indication: BREAST CANCER METASTATIC
     Route: 048
     Dates: start: 20140321

REACTIONS (1)
  - Diarrhoea [Recovered/Resolved]

NARRATIVE: CASE EVENT DATE: 20140502
